FAERS Safety Report 20620854 (Version 2)
Quarter: 2022Q3

REPORT INFORMATION
  Report Type: Spontaneous
  Country: CN (occurrence: None)
  Receive Date: 20220322
  Receipt Date: 20220901
  Transmission Date: 20221027
  Serious: Yes (Other)
  Sender: FDA-Public Use
  Company Number: CN-ROCHE-3009722

PATIENT
  Age: 57 Year
  Sex: Female

DRUGS (7)
  1. HERCEPTIN [Suspect]
     Active Substance: TRASTUZUMAB
     Indication: Breast cancer metastatic
     Dosage: 2 MG/KG (THE FIRST DOSE 4 MG/KG) FOR 12 CYCLES ?TRASTUZUMAB MAINTENANCE THERAPY
     Route: 065
     Dates: start: 2020
  2. KADCYLA [Suspect]
     Active Substance: ADO-TRASTUZUMAB EMTANSINE
     Indication: Breast cancer metastatic
     Route: 065
  3. PYROTINIB [Suspect]
     Active Substance: PYROTINIB
     Indication: Breast cancer metastatic
     Route: 065
     Dates: start: 2021
  4. PACLITAXEL [Concomitant]
     Active Substance: PACLITAXEL
     Indication: Breast cancer metastatic
     Route: 065
     Dates: start: 2020
  5. CYCLOPHOSPHAMIDE [Concomitant]
     Active Substance: CYCLOPHOSPHAMIDE
     Indication: Breast cancer metastatic
     Dosage: DDAC
     Dates: start: 2011
  6. TAMOXIFEN [Concomitant]
     Active Substance: TAMOXIFEN
     Indication: Breast cancer metastatic
     Dosage: FOR 2 YEARS
  7. CAPECITABINE [Concomitant]
     Active Substance: CAPECITABINE
     Indication: Breast cancer metastatic
     Dosage: DAY1-14, PER 21 DAYS AS A CYCLE
     Route: 048
     Dates: start: 2021

REACTIONS (2)
  - Platelet count decreased [Recovered/Resolved]
  - Palmar-plantar erythrodysaesthesia syndrome [Recovered/Resolved]

NARRATIVE: CASE EVENT DATE: 20210101
